FAERS Safety Report 9790818 (Version 2)
Quarter: 2013Q4

REPORT INFORMATION
  Report Type: Report from Study
  Country: FR (occurrence: FR)
  Receive Date: 20131231
  Receipt Date: 20131231
  Transmission Date: 20140711
  Serious: Yes (Hospitalization, Other)
  Sender: FDA-Public Use
  Company Number: FR-ABBVIE-13P-056-1117928-00

PATIENT
  Age: 45 Year
  Sex: Male
  Weight: 68 kg

DRUGS (11)
  1. RITONAVIR [Suspect]
     Indication: HIV INFECTION
     Route: 048
     Dates: start: 20121215
  2. ATAZANAVIR [Concomitant]
     Indication: HIV INFECTION
     Route: 048
     Dates: start: 20121215
  3. TRIMETOPRIM + SULFAMETOXAZOL [Concomitant]
     Indication: PROPHYLAXIS
     Dosage: 400/80
     Route: 048
  4. METFORMIN [Concomitant]
     Indication: TYPE 2 DIABETES MELLITUS
     Dates: start: 20101215
  5. LEVETIRACETAM [Concomitant]
     Indication: EPILEPSY
     Dates: start: 20130117
  6. ISONIAZIDE [Concomitant]
     Indication: TUBERCULOSIS
     Dates: start: 20121121
  7. PYRAZINAMIDE [Concomitant]
     Indication: PRODUCT USED FOR UNKNOWN INDICATION
     Route: 048
     Dates: start: 20121121
  8. RIFABUTIN [Concomitant]
     Indication: PRODUCT USED FOR UNKNOWN INDICATION
     Route: 048
     Dates: start: 20121217
  9. ATORVASTATIN CALCIUM [Concomitant]
     Indication: PRODUCT USED FOR UNKNOWN INDICATION
     Route: 048
  10. POTASSIUM CHLORIDE [Concomitant]
     Indication: PRODUCT USED FOR UNKNOWN INDICATION
     Dosage: ACCORDING TO THE IONOGRAM
  11. EMTRICITABINE W/TENOFOVIR [Concomitant]
     Indication: HIV INFECTION
     Dosage: 245MG/200MG
     Route: 048
     Dates: start: 20121215

REACTIONS (6)
  - Hypercalcaemia [Recovered/Resolved]
  - Hypercalcaemia [Recovered/Resolved]
  - Renal failure acute [Not Recovered/Not Resolved]
  - Dehydration [Not Recovered/Not Resolved]
  - Immune reconstitution inflammatory syndrome [Not Recovered/Not Resolved]
  - Renal tubular disorder [Not Recovered/Not Resolved]
